FAERS Safety Report 9030358 (Version 6)
Quarter: 2013Q4

REPORT INFORMATION
  Report Type: Spontaneous
  Country: US (occurrence: US)
  Receive Date: 20130122
  Receipt Date: 20131230
  Transmission Date: 20140711
  Serious: Yes (Hospitalization, Other)
  Sender: FDA-Public Use
  Company Number: US-009507513-1301USA009725

PATIENT
  Sex: Female

DRUGS (4)
  1. FOSAMAX [Suspect]
     Indication: OSTEOPOROSIS
     Dosage: 10 MG, QD
     Route: 048
     Dates: start: 1997, end: 2003
  2. FOSAMAX [Suspect]
     Indication: OSTEOPENIA
     Dosage: 70 MG, UNK
     Route: 048
  3. ALENDRONATE SODIUM [Suspect]
     Dosage: 70 MG, UNK
     Route: 048
  4. ALENDRONATE SODIUM [Suspect]
     Dosage: UNK
     Route: 048

REACTIONS (41)
  - Femur fracture [Recovering/Resolving]
  - Open reduction of fracture [Unknown]
  - Femur fracture [Unknown]
  - Surgery [Unknown]
  - Hypothyroidism [Unknown]
  - Hypertension [Unknown]
  - Irritable bowel syndrome [Unknown]
  - Osteoarthritis [Unknown]
  - Surgery [Not Recovered/Not Resolved]
  - Surgery [Not Recovered/Not Resolved]
  - Hospitalisation [Unknown]
  - Hospitalisation [Unknown]
  - Hospitalisation [Unknown]
  - Intervertebral disc operation [Unknown]
  - Spinal fusion surgery [Unknown]
  - Spinal laminectomy [Unknown]
  - Spinal fusion surgery [Unknown]
  - Spinal fusion surgery [Unknown]
  - Spinal operation [Unknown]
  - Spinal fusion surgery [Unknown]
  - Haemoglobin decreased [Recovering/Resolving]
  - Spinal column stenosis [Unknown]
  - Spinal column stenosis [Unknown]
  - Anaemia postoperative [Unknown]
  - Low turnover osteopathy [Unknown]
  - Fall [Unknown]
  - Transient ischaemic attack [Unknown]
  - Scoliosis [Unknown]
  - Adverse event [Unknown]
  - Memory impairment [Unknown]
  - Hypoaesthesia [Recovered/Resolved]
  - Gait disturbance [Unknown]
  - Intervertebral disc degeneration [Unknown]
  - Sciatica [Unknown]
  - Radiculopathy [Unknown]
  - Pseudarthrosis [Unknown]
  - Pain in extremity [Unknown]
  - Vertigo [Not Recovered/Not Resolved]
  - Gastrooesophageal reflux disease [Unknown]
  - Back pain [Unknown]
  - Arthralgia [Unknown]
